FAERS Safety Report 19725205 (Version 2)
Quarter: 2021Q3

REPORT INFORMATION
  Report Type: Spontaneous
  Country: US (occurrence: US)
  Receive Date: 20210819
  Receipt Date: 20210827
  Transmission Date: 20211014
  Serious: No
  Sender: FDA-Public Use
  Company Number: US-PFIZER INC-2021331493

PATIENT
  Age: 27 Year
  Sex: Male
  Weight: 79.38 kg

DRUGS (2)
  1. DEPO?ESTRADIOL [Suspect]
     Active Substance: ESTRADIOL CYPIONATE
     Indication: GENDER DYSPHORIA
     Dosage: 5MG/ML; TAKE ONE ML BY INJECTION WEEKLY
     Dates: start: 202012
  2. DEPO?ESTRADIOL [Suspect]
     Active Substance: ESTRADIOL CYPIONATE
     Dosage: UNK

REACTIONS (1)
  - Off label use [Unknown]
